FAERS Safety Report 4903145-2 (Version None)
Quarter: 2006Q1

REPORT INFORMATION
  Report Type: 
  Country: None (occurrence: None)
  Receive Date: 20060207
  Receipt Date: 20050606
  Transmission Date: 20060701
  Serious: Yes (Death, Hospitalization)
  Sender: FDA-Public Use
  Company Number: US-MERCK-0506USA01051

PATIENT
  Age: 55 Year
  Sex: Female
  Weight: 57 kg

DRUGS (4)
  1. VIOXX [Suspect]
     Indication: MUSCULOSKELETAL PAIN
     Route: 048
     Dates: start: 20000821, end: 20020601
  2. PLAQUENIL [Concomitant]
     Route: 048
  3. ELAVIL [Concomitant]
     Route: 048
  4. OXYCONTIN [Concomitant]
     Indication: BACK PAIN
     Route: 065

REACTIONS (2)
  - ARTERIOSCLEROSIS CORONARY ARTERY [None]
  - VENTRICULAR ARRHYTHMIA [None]
